FAERS Safety Report 13868658 (Version 2)
Quarter: 2017Q3

REPORT INFORMATION
  Report Type: Spontaneous
  Country: US (occurrence: US)
  Receive Date: 20170815
  Receipt Date: 20170906
  Transmission Date: 20171127
  Serious: No
  Sender: FDA-Public Use
  Company Number: US-PFIZER INC-2017349136

PATIENT
  Age: 61 Year
  Sex: Female
  Weight: 118 kg

DRUGS (4)
  1. XARELTO [Suspect]
     Active Substance: RIVAROXABAN
     Indication: PULMONARY EMBOLISM
     Dosage: 20 MG, 1X/DAY
     Route: 048
     Dates: start: 20161101
  2. AROMASIN [Suspect]
     Active Substance: EXEMESTANE
     Indication: BREAST CANCER
     Dosage: 25 MG, 1X/DAY, (EVERY MORNING)
     Route: 048
     Dates: start: 2016, end: 20170815
  3. FASLODEX [Concomitant]
     Active Substance: FULVESTRANT
     Indication: BONE CANCER METASTATIC
     Dosage: UNK UNK, ALTERNATE DAY (EVERY OTHER WEEK ON WEDNESDAY)
     Dates: start: 20170823
  4. AROMASIN [Suspect]
     Active Substance: EXEMESTANE
     Indication: FEMALE SEX HORMONE LEVEL ABNORMAL

REACTIONS (2)
  - Headache [Recovered/Resolved]
  - Arthralgia [Recovered/Resolved]

NARRATIVE: CASE EVENT DATE: 2016
